FAERS Safety Report 18185905 (Version 1)
Quarter: 2020Q3

REPORT INFORMATION
  Report Type: Spontaneous
  Country: CN (occurrence: CN)
  Receive Date: 20200824
  Receipt Date: 20200824
  Transmission Date: 20201103
  Serious: Yes (Hospitalization, Other)
  Sender: FDA-Public Use
  Company Number: CN-LUPIN PHARMACEUTICALS INC.-2020-04937

PATIENT
  Age: 44 Year
  Sex: Female

DRUGS (1)
  1. NORETHINDRONE. [Suspect]
     Active Substance: NORETHINDRONE
     Indication: VAGINAL HAEMORRHAGE
     Dosage: UNK
     Route: 048

REACTIONS (2)
  - Cerebral venous thrombosis [Recovering/Resolving]
  - Cerebral infarction [Recovering/Resolving]
